FAERS Safety Report 6903134-2 (Version None)
Quarter: 2010Q3

REPORT INFORMATION
  Report Type: 
  Country: None (occurrence: None)
  Receive Date: 20100803
  Receipt Date: 20080718
  Transmission Date: 20110219
  Serious: Yes (Other)
  Sender: FDA-Public Use
  Company Number: US-PFIZER INC-2008037609

PATIENT
  Sex: Female

DRUGS (6)
  1. LYRICA [Suspect]
     Indication: FIBROMYALGIA
  2. SEROQUEL [Suspect]
  3. DEPAKOTE [Concomitant]
  4. ARICEPT [Concomitant]
  5. PROZAC [Concomitant]
  6. WELLBUTRIN [Concomitant]

REACTIONS (3)
  - FIBROMYALGIA [None]
  - SWELLING [None]
  - WEIGHT INCREASED [None]
